FAERS Safety Report 10652389 (Version 1)
Quarter: 2014Q4

REPORT INFORMATION
  Report Type: Report from Study
  Country: TR (occurrence: TR)
  Receive Date: 20141215
  Receipt Date: 20141215
  Transmission Date: 20150529
  Serious: Yes (Other)
  Sender: FDA-Public Use
  Company Number: TR-BAYER-2014-183744

PATIENT
  Age: 51 Year
  Sex: Female
  Weight: 95 kg

DRUGS (3)
  1. BETAFERON [Suspect]
     Active Substance: INTERFERON BETA-1B
     Indication: RELAPSING-REMITTING MULTIPLE SCLEROSIS
     Dosage: UNK, QOD
     Route: 058
     Dates: start: 20080101, end: 20141211
  2. FAMPYRA [Concomitant]
     Active Substance: DALFAMPRIDINE
     Dosage: 10 MG, BID
     Route: 048
     Dates: start: 20120101
  3. CIPRALEX [Concomitant]
     Active Substance: ESCITALOPRAM OXALATE
     Dosage: 10 MG, QD
     Route: 048

REACTIONS (2)
  - Multiple sclerosis [None]
  - Drug ineffective [None]

NARRATIVE: CASE EVENT DATE: 20140901
